FAERS Safety Report 7702716-8 (Version None)
Quarter: 2011Q3

REPORT INFORMATION
  Report Type: 
  Country: None (occurrence: None)
  Receive Date: 20110817
  Receipt Date: 20110810
  Transmission Date: 20111222
  Serious: Yes (Other)
  Sender: FDA-Public Use
  Company Number: 201111010

PATIENT
  Sex: Female

DRUGS (12)
  1. NEURONTIN [Concomitant]
  2. RANITIDINE [Concomitant]
  3. LIORESAL [Suspect]
     Indication: MUSCLE SPASTICITY
     Dosage: DAILY, INTRATHECAL
     Route: 037
  4. ACETAMINOPHEN [Concomitant]
  5. COUMADIN [Concomitant]
  6. REGLAN [Concomitant]
  7. MACRODANTIN [Concomitant]
  8. DIAZEPAM [Concomitant]
  9. MIRALAX [Concomitant]
  10. LEVETIRACETAM [Concomitant]
  11. DOCUSATE SODIUM [Concomitant]
  12. HYDROCODONE BITARTRATE AND ACETAMINOPHEN [Concomitant]

REACTIONS (14)
  - SOMNOLENCE [None]
  - RESPIRATORY RATE DECREASED [None]
  - CONDITION AGGRAVATED [None]
  - DIZZINESS [None]
  - HYPOKINESIA [None]
  - OVERDOSE [None]
  - HYPOPNOEA [None]
  - DYSKINESIA [None]
  - TREMOR [None]
  - LETHARGY [None]
  - SPINAL DEFORMITY [None]
  - STARING [None]
  - MUSCLE SPASTICITY [None]
  - DECREASED ACTIVITY [None]
